FAERS Safety Report 10254764 (Version 1)
Quarter: 2014Q2

REPORT INFORMATION
  Report Type: Spontaneous
  Country: IL (occurrence: IL)
  Receive Date: 20140624
  Receipt Date: 20140624
  Transmission Date: 20141212
  Serious: Yes (Other)
  Sender: FDA-Public Use
  Company Number: IL-BAYER-2014-093824

PATIENT
  Sex: Female

DRUGS (5)
  1. QLAIR [Suspect]
     Indication: MENORRHAGIA
     Dosage: UNK
     Route: 048
     Dates: start: 201402
  2. QLAIR [Suspect]
     Indication: CONTRACEPTION
  3. MIRENA [Suspect]
     Indication: MENORRHAGIA
     Dosage: 20 MCG/24HR, CONT
     Route: 015
  4. FOLIC ACID [Concomitant]
  5. IRON [Concomitant]

REACTIONS (7)
  - Ectopic pregnancy [Recovered/Resolved]
  - Drug ineffective [Recovered/Resolved]
  - Haemorrhage in pregnancy [Recovered/Resolved]
  - Asthenia [Recovered/Resolved]
  - Fatigue [Recovered/Resolved]
  - Abdominal pain [Recovered/Resolved]
  - Drug ineffective [Recovered/Resolved]
